FAERS Safety Report 22398103 (Version 1)
Quarter: 2023Q2

REPORT INFORMATION
  Report Type: Spontaneous
  Country: IL (occurrence: IL)
  Receive Date: 20230602
  Receipt Date: 20230602
  Transmission Date: 20230721
  Serious: Yes (Death, Hospitalization, Other)
  Sender: FDA-Public Use
  Company Number: IL-SUN PHARMACEUTICAL INDUSTRIES LTD-2023R1-392391

PATIENT
  Age: 57 Year
  Sex: Female

DRUGS (1)
  1. PREDNISONE [Suspect]
     Active Substance: PREDNISONE
     Indication: Interstitial lung disease
     Dosage: 5 MILLIGRAM
     Route: 065

REACTIONS (4)
  - Coma [Fatal]
  - Brain death [Fatal]
  - Brain herniation [Fatal]
  - Encephalitis [Fatal]
